FAERS Safety Report 8783390 (Version 1)
Quarter: 2012Q4

REPORT INFORMATION
  Report Type: 
  Country: US (occurrence: US)
  Receive Date: 20120913
  Receipt Date: 20120913
  Transmission Date: 20130627
  Serious: Yes (Other)
  Sender: FDA-Public Use
  Company Number: US-JNJFOC-20120902986

PATIENT
  Age: 11 Month
  Sex: Male
  Weight: 4.08 kg

DRUGS (2)
  1. DESITIN MAXIMUM STRENGTH ORIGINAL [Suspect]
     Indication: DERMATITIS DIAPER
     Dosage: Pea size amount
     Route: 061
     Dates: start: 20120902, end: 20120903
  2. UNKNOWN MEDICATION [Concomitant]
     Route: 065

REACTIONS (2)
  - Application site infection [Not Recovered/Not Resolved]
  - Drug ineffective [Not Recovered/Not Resolved]
